FAERS Safety Report 23257544 (Version 1)
Quarter: 2023Q4

REPORT INFORMATION
  Report Type: Spontaneous
  Country: US (occurrence: US)
  Receive Date: 20231204
  Receipt Date: 20231204
  Transmission Date: 20240109
  Serious: Yes (Other)
  Sender: FDA-Public Use
  Company Number: US-INSUD PHARMA-2311US08501

PATIENT

DRUGS (3)
  1. TESTOSTERONE CYPIONATE [Suspect]
     Active Substance: TESTOSTERONE CYPIONATE
     Indication: Muscle building therapy
     Dosage: 250 MG-350 MG A WEEK
     Route: 065
  2. TRENBOLONE ACETATE [Suspect]
     Active Substance: TRENBOLONE ACETATE
     Indication: Muscle building therapy
     Dosage: UNK
     Route: 065
  3. ANASTROZOLE [Suspect]
     Active Substance: ANASTROZOLE
     Indication: Muscle building therapy
     Dosage: NOT ADMINISTERED ON A REGULAR BASIS
     Route: 065

REACTIONS (4)
  - Nephropathy toxic [Unknown]
  - Fatigue [Unknown]
  - Drug abuse [Unknown]
  - Amenorrhoea [Unknown]
